FAERS Safety Report 7075629-5 (Version None)
Quarter: 2010Q4

REPORT INFORMATION
  Report Type: 
  Country: None (occurrence: None)
  Receive Date: 20101030
  Receipt Date: 20101013
  Transmission Date: 20110411
  Serious: No
  Sender: FDA-Public Use
  Company Number: US-WYE-H18177810

PATIENT
  Age: 66 Year
  Sex: Female
  Weight: 56.75 kg

DRUGS (3)
  1. ADVIL PM [Suspect]
     Indication: INSOMNIA
     Dosage: 2 CAPLETS DAILY
     Route: 048
     Dates: start: 20101010
  2. OXYGEN [Concomitant]
  3. FOLIC ACID [Concomitant]

REACTIONS (2)
  - CONDITION AGGRAVATED [None]
  - OROPHARYNGEAL PAIN [None]
